FAERS Safety Report 14323802 (Version 2)
Quarter: 2018Q1

REPORT INFORMATION
  Report Type: Report from Study
  Country: AU (occurrence: AU)
  Receive Date: 20171226
  Receipt Date: 20180201
  Transmission Date: 20180509
  Serious: Yes (Other)
  Sender: FDA-Public Use
  Company Number: AU-REGENERON PHARMACEUTICALS, INC.-2017-29855

PATIENT

DRUGS (2)
  1. EYLEA [Suspect]
     Active Substance: AFLIBERCEPT
     Indication: DIABETIC RETINAL OEDEMA
     Dosage: 1 DF, Q1MON, EYE UNKNOWN
     Route: 031
  2. EYLEA [Suspect]
     Active Substance: AFLIBERCEPT
     Indication: NEOVASCULAR AGE-RELATED MACULAR DEGENERATION
     Dosage: 1 DF, ONCE, EYE UNKNOWN, MONTHLY
     Route: 031
     Dates: start: 20171114

REACTIONS (3)
  - Intra-ocular injection [Recovered/Resolved]
  - Injection site discomfort [Recovered/Resolved]
  - Blindness transient [Recovered/Resolved]
